FAERS Safety Report 7350234-1 (Version None)
Quarter: 2011Q1

REPORT INFORMATION
  Report Type: 
  Country: None (occurrence: None)
  Receive Date: 20110303
  Receipt Date: 20110221
  Transmission Date: 20110831
  Serious: No
  Sender: FDA-Public Use
  Company Number: 2011-00065

PATIENT
  Age: 61 Year
  Sex: Female
  Weight: 53.0709 kg

DRUGS (18)
  1. LOVASTATIN [Concomitant]
  2. OLIVE LEAF EXTRACT [Concomitant]
  3. JUICE PLUS-ORCHARD + GARDEN BLEND [Concomitant]
  4. ACTIZYNE [Concomitant]
  5. ZICAM COLD REMEDY ZAVORS [Suspect]
     Dosage: TID X 2 DAYS
     Dates: start: 20110129, end: 20110130
  6. CALCIUM [Concomitant]
  7. CINAMMON [Concomitant]
  8. MAGNESIUM [Concomitant]
  9. ASODIPHILUS [Concomitant]
  10. FLAXSEED OIL [Concomitant]
  11. RESVETROL [Concomitant]
  12. SUPER B COMPLEX [Concomitant]
  13. CO Q 10 [Concomitant]
  14. COD LIVER [Concomitant]
  15. ZICAM COLD REMEDY RAPIDMELTS [Suspect]
     Dosage: TID X 2 DAYS
     Dates: start: 20110131, end: 20110201
  16. D3 [Concomitant]
  17. FISH OIL [Concomitant]
  18. IMMUNE RENEW [Concomitant]

REACTIONS (2)
  - AGEUSIA [None]
  - ANOSMIA [None]
